FAERS Safety Report 19327384 (Version 1)
Quarter: 2021Q2

REPORT INFORMATION
  Report Type: Spontaneous
  Country: GB (occurrence: GB)
  Receive Date: 20210528
  Receipt Date: 20210528
  Transmission Date: 20210717
  Serious: Yes (Disabling)
  Sender: FDA-Public Use
  Company Number: GB-TORRENT-00025775

PATIENT
  Age: 68 Year

DRUGS (4)
  1. CLOPIDOGREL [Suspect]
     Active Substance: CLOPIDOGREL BISULFATE
     Indication: PRODUCT USED FOR UNKNOWN INDICATION
     Dosage: 75MG DAILY
  2. METHOTREXATE. [Concomitant]
     Active Substance: METHOTREXATE
     Indication: PRODUCT USED FOR UNKNOWN INDICATION
     Dosage: UNKNOWN
  3. ATORVASTATIN [Suspect]
     Active Substance: ATORVASTATIN
     Indication: ISCHAEMIC STROKE
     Dosage: 80MG DAILY
     Route: 048
     Dates: start: 20210325, end: 20210517
  4. AMITRIPTYLINE [Concomitant]
     Active Substance: AMITRIPTYLINE
     Indication: PRODUCT USED FOR UNKNOWN INDICATION
     Dosage: UNKNOWN

REACTIONS (3)
  - Myalgia [Unknown]
  - Nocturia [Unknown]
  - Dysuria [Unknown]

NARRATIVE: CASE EVENT DATE: 20210401
